FAERS Safety Report 6688506-6 (Version None)
Quarter: 2010Q2

REPORT INFORMATION
  Report Type: 
  Country: None (occurrence: None)
  Receive Date: 20100420
  Receipt Date: 20100409
  Transmission Date: 20101027
  Serious: Yes (Hospitalization, Other)
  Sender: FDA-Public Use
  Company Number: US-AMGEN-QUU403094

PATIENT
  Sex: Female
  Weight: 81.7 kg

DRUGS (22)
  1. ARANESP [Suspect]
     Indication: RENAL FAILURE CHRONIC
     Route: 058
     Dates: start: 20050307, end: 20090928
  2. PROCRIT [Suspect]
     Indication: RENAL FAILURE CHRONIC
     Dates: start: 20040809, end: 20050208
  3. FERROUS SULFATE TAB [Concomitant]
  4. ALLOPURINOL [Concomitant]
  5. METOPROLOL TARTRATE [Concomitant]
  6. DILANTIN [Concomitant]
  7. TRICOR [Concomitant]
  8. FUROSEMIDE [Concomitant]
  9. DETROL [Concomitant]
  10. LANTUS [Concomitant]
  11. HUMALOG [Concomitant]
     Route: 058
  12. ASPIRIN [Concomitant]
  13. DIOVAN [Concomitant]
  14. CITALOPRAM HYDROBROMIDE [Concomitant]
  15. PROTONIX [Concomitant]
  16. NIACIN [Concomitant]
  17. ZYRTEC [Concomitant]
  18. ISORDIL [Concomitant]
  19. COREG [Concomitant]
  20. PANTOPRAZOLE [Concomitant]
  21. VITAMIN D [Concomitant]
  22. CALCITRIOL [Concomitant]

REACTIONS (16)
  - ACINETOBACTER INFECTION [None]
  - AORTIC VALVE SCLEROSIS [None]
  - CARDIAC FAILURE CONGESTIVE [None]
  - DRUG TOXICITY [None]
  - GASTRITIS EROSIVE [None]
  - HAEMORRHAGIC STROKE [None]
  - HYPERURICAEMIA [None]
  - IMPAIRED HEALING [None]
  - MYOCARDIAL INFARCTION [None]
  - RENAL FAILURE ACUTE [None]
  - SKIN ULCER [None]
  - STAPHYLOCOCCAL INFECTION [None]
  - SUBCLAVIAN ARTERY STENOSIS [None]
  - SUBCLAVIAN STEAL SYNDROME [None]
  - THERAPEUTIC RESPONSE DECREASED [None]
  - UPPER GASTROINTESTINAL HAEMORRHAGE [None]
